FAERS Safety Report 6858852-1 (Version None)
Quarter: 2010Q3

REPORT INFORMATION
  Report Type: 
  Country: None (occurrence: None)
  Receive Date: 20100719
  Receipt Date: 20080422
  Transmission Date: 20110219
  Serious: No
  Sender: FDA-Public Use
  Company Number: US-PFIZER INC-2008015610

PATIENT
  Sex: Female
  Weight: 101.6 kg

DRUGS (6)
  1. CHANTIX [Suspect]
     Indication: SMOKING CESSATION THERAPY
     Dates: end: 20080101
  2. FLONASE [Concomitant]
     Indication: HYPERSENSITIVITY
  3. ORAL CONTRACEPTIVE NOS [Concomitant]
  4. VITAMINS [Concomitant]
  5. PROZAC [Concomitant]
  6. ATIVAN [Concomitant]

REACTIONS (5)
  - ABNORMAL DREAMS [None]
  - ANXIETY [None]
  - IRRITABILITY [None]
  - PANIC ATTACK [None]
  - VERTIGO [None]
